FAERS Safety Report 23894256 (Version 2)
Quarter: 2024Q3

REPORT INFORMATION
  Report Type: Spontaneous
  Country: US (occurrence: US)
  Receive Date: 20240524
  Receipt Date: 20240926
  Transmission Date: 20241017
  Serious: No
  Sender: ROCHE
  Company Number: US-ROCHE-3402797

PATIENT
  Sex: Female

DRUGS (1)
  1. OCREVUS [Suspect]
     Active Substance: OCRELIZUMAB
     Indication: Multiple sclerosis
     Dosage: LAST OCREVUS INFUSION WAS ON 02/JUN/2023
     Route: 042
     Dates: start: 20210521

REACTIONS (1)
  - Maternal exposure before pregnancy [Unknown]
